FAERS Safety Report 20077469 (Version 2)
Quarter: 2022Q1

REPORT INFORMATION
  Report Type: Report from Study
  Country: US (occurrence: US)
  Receive Date: 20211116
  Receipt Date: 20220113
  Transmission Date: 20220424
  Serious: Yes (Hospitalization, Other)
  Sender: FDA-Public Use
  Company Number: US-HORIZON THERAPEUTICS-HZN-2021-008839

PATIENT

DRUGS (8)
  1. RAYOS [Suspect]
     Active Substance: PREDNISONE
     Indication: Immune thrombocytopenia
     Dosage: 1 MG/KG WITH (80MG) TAPER BY 10 MG WEEKLY
     Route: 065
     Dates: start: 202108, end: 2021
  2. TREPROSTINIL [Suspect]
     Active Substance: TREPROSTINIL
     Indication: Pulmonary arterial hypertension
     Dosage: 2.5 MG, TID, REGIMEN  2
     Route: 048
     Dates: start: 20190606
  3. ORENITRAM [Suspect]
     Active Substance: TREPROSTINIL
     Indication: Pulmonary arterial hypertension
     Dosage: 2.5 MG, TID
     Route: 048
  4. .BETA.-ACETYLDIGOXIN [Suspect]
     Active Substance: .BETA.-ACETYLDIGOXIN
     Indication: Product used for unknown indication
     Dosage: UNK
     Route: 065
     Dates: end: 2021
  5. AMLODIPINE BESYLATE [Concomitant]
     Active Substance: AMLODIPINE BESYLATE
     Indication: Product used for unknown indication
     Route: 065
  6. LETAIRIS [Concomitant]
     Active Substance: AMBRISENTAN
  7. OXYGEN [Concomitant]
     Active Substance: OXYGEN
  8. REVATIO [Concomitant]
     Active Substance: SILDENAFIL CITRATE

REACTIONS (2)
  - Substance-induced psychotic disorder [Recovered/Resolved]
  - Immune thrombocytopenia [Not Recovered/Not Resolved]

NARRATIVE: CASE EVENT DATE: 20210218
